FAERS Safety Report 16907580 (Version 1)
Quarter: 2019Q4

REPORT INFORMATION
  Report Type: Spontaneous
  Country: US (occurrence: US)
  Receive Date: 20191011
  Receipt Date: 20191011
  Transmission Date: 20200122
  Serious: Yes (Other)
  Sender: FDA-Public Use
  Company Number: US-ALEMBIC PHARMACUETICALS LIMITED-2019SCAL000750

PATIENT

DRUGS (1)
  1. DOXYCYCLINE. [Suspect]
     Active Substance: DOXYCYCLINE
     Indication: VENOLYMPHATIC MALFORMATION
     Dosage: A CONCENTRATION OF 10 MG/ML OF DOXYCYCLINE WAS INSTILLED THROUGH CATHETERS, RANGING FROM 230 TO 300

REACTIONS (7)
  - Laryngeal disorder [Recovered/Resolved]
  - Nerve injury [Recovered/Resolved]
  - Dysphagia [Recovered/Resolved]
  - Diarrhoea [Unknown]
  - Aspiration [Recovered/Resolved]
  - Laryngeal injury [Recovered/Resolved]
  - Vomiting [Unknown]
